FAERS Safety Report 6084792-4 (Version None)
Quarter: 2009Q1

REPORT INFORMATION
  Report Type: 
  Country: None (occurrence: None)
  Receive Date: 20090217
  Receipt Date: 20090210
  Transmission Date: 20090719
  Serious: Yes (Life-Threatening)
  Sender: FDA-Public Use
  Company Number: 171116

PATIENT
  Age: 50 Year
  Sex: Female
  Weight: 97.2 kg

DRUGS (8)
  1. CARBOPLATIN [Suspect]
     Indication: OVARIAN CANCER METASTATIC
     Dosage: 1047 MG, ^Q 3 WK^, INTRAVENOUS
     Route: 043
     Dates: start: 20090129, end: 20090129
  2. ZANTAC [Concomitant]
  3. ZOFRAN [Concomitant]
  4. DECADRON [Concomitant]
  5. BENADRYL [Concomitant]
  6. TAXOL [Concomitant]
  7. ATIVAN [Concomitant]
  8. (HYDROCORTISONE) [Concomitant]

REACTIONS (11)
  - BLOOD PRESSURE DECREASED [None]
  - DIPLOPIA [None]
  - ERYTHEMA [None]
  - FEELING HOT [None]
  - FLUSHING [None]
  - HYPOAESTHESIA [None]
  - INFUSION RELATED REACTION [None]
  - NAUSEA [None]
  - OXYGEN SATURATION DECREASED [None]
  - PRURITUS [None]
  - RASH [None]
